FAERS Safety Report 6027992-1 (Version None)
Quarter: 2008Q4

REPORT INFORMATION
  Report Type: 
  Country: None (occurrence: None)
  Receive Date: 20081230
  Receipt Date: 20081217
  Transmission Date: 20090506
  Serious: Yes (Death, Hospitalization, Disabling)
  Sender: FDA-Public Use
  Company Number: WAES 0707USA00097

PATIENT
  Age: 47 Year
  Sex: Male

DRUGS (10)
  1. CRIXIVAN [Suspect]
     Indication: HIV INFECTION
     Dosage: 800 MG/TID
     Route: 048
     Dates: start: 19960725, end: 19981223
  2. EPIVIR [Suspect]
     Indication: HIV INFECTION
     Dosage: 150 MG/BID; 50 MG/DAILY
     Route: 048
     Dates: start: 19970424, end: 20051128
  3. EPIVIR [Suspect]
     Indication: HIV INFECTION
     Dosage: 150 MG/BID; 50 MG/DAILY
     Route: 048
     Dates: start: 20070111, end: 20080222
  4. ZERIT [Suspect]
     Indication: HIV INFECTION
     Dosage: 30 MG/BID
     Route: 048
     Dates: start: 19980305, end: 20040126
  5. VIRACEPT [Suspect]
     Dosage: 1000 MG/BID
     Route: 048
     Dates: start: 19981224, end: 20001018
  6. COTRIM [Concomitant]
  7. BANAMBAX [Concomitant]
  8. HIVID [Concomitant]
  9. LOPEMIN [Concomitant]
  10. ZANTAC [Concomitant]

REACTIONS (10)
  - BLOOD BILIRUBIN INCREASED [None]
  - BLOOD PRESSURE DECREASED [None]
  - DIABETES MELLITUS [None]
  - DIABETIC NEUROPATHY [None]
  - HAEMODIALYSIS [None]
  - HYPERURICAEMIA [None]
  - JAUNDICE [None]
  - PANCYTOPENIA [None]
  - RENAL FAILURE [None]
  - SUDDEN DEATH [None]
